FAERS Safety Report 10399893 (Version 1)
Quarter: 2014Q3

REPORT INFORMATION
  Report Type: Spontaneous
  Country: US (occurrence: None)
  Receive Date: 20140819
  Receipt Date: 20140819
  Transmission Date: 20150326
  Serious: Yes (Hospitalization)
  Sender: FDA-Public Use
  Company Number: None

PATIENT
  Age: 70 Year
  Sex: Male
  Weight: 77.3 kg

DRUGS (1)
  1. IBUPROFEN. [Suspect]
     Active Substance: IBUPROFEN
     Dates: start: 20140602

REACTIONS (3)
  - Gastrointestinal haemorrhage [None]
  - Anaemia [None]
  - Erosive oesophagitis [None]

NARRATIVE: CASE EVENT DATE: 20140602
